FAERS Safety Report 6744856-6 (Version None)
Quarter: 2010Q2

REPORT INFORMATION
  Report Type: 
  Country: None (occurrence: None)
  Receive Date: 20100527
  Receipt Date: 20100405
  Transmission Date: 20101027
  Serious: No
  Sender: FDA-Public Use
  Company Number: US-BRISTOL-MYERS SQUIBB COMPANY-15049653

PATIENT
  Age: 45 Year
  Sex: Male

DRUGS (4)
  1. ONGLYZA [Suspect]
     Indication: GLYCOSYLATED HAEMOGLOBIN DECREASED
  2. METFORMIN HCL [Suspect]
  3. FLONASE [Concomitant]
  4. CLARITIN [Concomitant]

REACTIONS (1)
  - NASOPHARYNGITIS [None]
